FAERS Safety Report 10067687 (Version 1)
Quarter: 2014Q2

REPORT INFORMATION
  Report Type: Spontaneous
  Country: US (occurrence: None)
  Receive Date: 20140408
  Receipt Date: 20140408
  Transmission Date: 20141212
  Serious: Yes (Other)
  Sender: FDA-Public Use
  Company Number: None

PATIENT
  Age: 55 Year
  Sex: Male

DRUGS (1)
  1. TRAMADOL 50 [Suspect]
     Indication: BACK PAIN
     Dosage: 3 BID AND 2 HS, PO
     Route: 048

REACTIONS (2)
  - Night sweats [None]
  - Pyrexia [None]
